FAERS Safety Report 10989160 (Version 1)
Quarter: 2015Q2

REPORT INFORMATION
  Report Type: Spontaneous
  Country: US (occurrence: US)
  Receive Date: 20150406
  Receipt Date: 20150406
  Transmission Date: 20150821
  Serious: No
  Sender: FDA-Public Use
  Company Number: US-009507513-1503USA013942

PATIENT
  Age: 32 Year
  Sex: Female

DRUGS (2)
  1. ELAVIL [Suspect]
     Active Substance: AMITRIPTYLINE HYDROCHLORIDE
     Indication: MIGRAINE
     Dosage: 25 MG, AT BEDTIME
     Route: 048
  2. PROPRANOLOL [Suspect]
     Active Substance: PROPRANOLOL\PROPRANOLOL HYDROCHLORIDE
     Indication: MIGRAINE
     Dosage: 160 MG, DAILY
     Route: 048

REACTIONS (1)
  - Drug ineffective [Unknown]
